FAERS Safety Report 11230660 (Version 1)
Quarter: 2015Q2

REPORT INFORMATION
  Report Type: Spontaneous
  Country: VE (occurrence: None)
  Receive Date: 20150629
  Receipt Date: 20150629
  Transmission Date: 20150821
  Serious: Yes (Other)
  Sender: FDA-Public Use
  Company Number: VE-2015VAL000410

PATIENT
  Age: 49 Year
  Sex: Male

DRUGS (2)
  1. OMEPRAZOLE. [Concomitant]
     Active Substance: OMEPRAZOLE
  2. PARLODEL [Suspect]
     Active Substance: BROMOCRIPTINE MESYLATE
     Indication: BRAIN NEOPLASM
     Route: 048
     Dates: end: 201506

REACTIONS (10)
  - Migraine [None]
  - Malaise [None]
  - Headache [None]
  - Optic nerve disorder [None]
  - Off label use [None]
  - Visual impairment [None]
  - Vision blurred [None]
  - Optic nerve compression [None]
  - Eye pain [None]
  - Drug dose omission [None]

NARRATIVE: CASE EVENT DATE: 201506
